FAERS Safety Report 20157639 (Version 1)
Quarter: 2021Q4

REPORT INFORMATION
  Report Type: Spontaneous
  Country: CN (occurrence: CN)
  Receive Date: 20211207
  Receipt Date: 20211207
  Transmission Date: 20220303
  Serious: Yes (Hospitalization, Other)
  Sender: FDA-Public Use
  Company Number: CN-PFIZER INC-202101663841

PATIENT
  Age: 25 Year
  Sex: Male
  Weight: 70 kg

DRUGS (4)
  1. SOLU-MEDROL [Suspect]
     Active Substance: METHYLPREDNISOLONE SODIUM SUCCINATE
     Indication: Hepatic failure
     Dosage: 60 MG, 1X/DAY
     Route: 041
     Dates: start: 20211108, end: 20211111
  2. SOLU-MEDROL [Suspect]
     Active Substance: METHYLPREDNISOLONE SODIUM SUCCINATE
     Dosage: 40 MG, 1X/DAY
     Route: 041
     Dates: start: 20211111, end: 20211116
  3. ENTECAVIR [Concomitant]
     Active Substance: ENTECAVIR
     Indication: Hepatic failure
     Dosage: 1 DF, 1X/DAY
     Route: 048
     Dates: start: 20211029, end: 20211117
  4. TRANSMETIL [ADEMETIONINE 1,4-BUTANEDISULFONATE] [Concomitant]
     Indication: Hepatic failure
     Dosage: 1 G, 1X/DAY
     Route: 041
     Dates: start: 20211028, end: 20211117

REACTIONS (2)
  - Initial insomnia [Recovered/Resolved]
  - Dysphoria [Recovered/Resolved]

NARRATIVE: CASE EVENT DATE: 20211115
